FAERS Safety Report 10070549 (Version 1)
Quarter: 2014Q2

REPORT INFORMATION
  Report Type: Spontaneous
  Country: CA (occurrence: CA)
  Receive Date: 20140410
  Receipt Date: 20140410
  Transmission Date: 20141212
  Serious: Yes (Other)
  Sender: FDA-Public Use
  Company Number: CA-PFIZER INC-2014096745

PATIENT
  Sex: 0

DRUGS (1)
  1. ACCUPRIL [Suspect]
     Dosage: 10 MG, UNK

REACTIONS (3)
  - Diabetes mellitus [Unknown]
  - Impaired gastric emptying [Not Recovered/Not Resolved]
  - Medication residue present [Not Recovered/Not Resolved]
